FAERS Safety Report 9160201 (Version 2)
Quarter: 2013Q1

REPORT INFORMATION
  Report Type: Spontaneous
  Country: FR (occurrence: None)
  Receive Date: 20130219
  Receipt Date: 20130226
  Transmission Date: 20140127
  Serious: Yes (Hospitalization)
  Sender: FDA-Public Use
  Company Number: SYM-2013-00573

PATIENT
  Age: 99 Year
  Sex: Female

DRUGS (7)
  1. FLAGYL (METRONIDAZOLE) (500 MILLIGRAM) (METRONIDAZOLE) [Suspect]
     Indication: PRODUCT USED FOR UNKNOWN INDICATION
     Dates: start: 20130110, end: 20130113
  2. ROCEPHINE (CEFTRIAXONE SODIUM) (1 GRAM, POWDER) (CEFTRIAXONE SODIUM) [Suspect]
     Route: 042
     Dates: start: 20130110, end: 20130113
  3. FUROSEMIDE [Concomitant]
  4. TAREG (VALSARTAN) (VALSARTAN) [Concomitant]
  5. KARDEGIC (ACETYLSALICYLATE LYSINE) (ACETYLSALICYLATE LYSINE) [Concomitant]
  6. EUPANTOL (PANTOPRAZOLE SODIUM SESQUIHYDRATE) (PANTOPRAZOLE SODIUM SESQUIHYDRATE) [Concomitant]
  7. CORDARONE (AMIODARONE HYDROCHLORIDE) (AMIODARONE HYDROCHLORIDE) [Concomitant]

REACTIONS (5)
  - Urticaria [None]
  - Cyanosis [None]
  - Erythema [None]
  - Papule [None]
  - Oedema peripheral [None]
